FAERS Safety Report 26195583 (Version 1)
Quarter: 2025Q4

REPORT INFORMATION
  Report Type: Spontaneous
  Country: US (occurrence: US)
  Receive Date: 20251224
  Receipt Date: 20251224
  Transmission Date: 20260117
  Serious: No
  Sender: Haleon PLC
  Company Number: US-HALEON-2280095

PATIENT

DRUGS (1)
  1. ADVIL SINUS CONGESTION AND PAIN RELIEF [Suspect]
     Active Substance: IBUPROFEN\PHENYLEPHRINE HYDROCHLORIDE
     Indication: Sinus congestion

REACTIONS (2)
  - Constipation [Unknown]
  - Diarrhoea [Unknown]
